FAERS Safety Report 6834069-1 (Version None)
Quarter: 2010Q3

REPORT INFORMATION
  Report Type: 
  Country: None (occurrence: None)
  Receive Date: 20100712
  Receipt Date: 20070409
  Transmission Date: 20110219
  Serious: No
  Sender: FDA-Public Use
  Company Number: US-PFIZER INC-2007029083

PATIENT
  Sex: Female
  Weight: 58.97 kg

DRUGS (4)
  1. CHANTIX [Suspect]
     Indication: SMOKING CESSATION THERAPY
     Dates: start: 20070406, end: 20070407
  2. MAGNESIUM [Interacting]
     Dates: end: 20070401
  3. CENTRUM [Concomitant]
  4. CELEBREX [Concomitant]
     Dates: end: 20070406

REACTIONS (7)
  - DRUG INTERACTION [None]
  - DRY MOUTH [None]
  - FATIGUE [None]
  - FEELING ABNORMAL [None]
  - HOT FLUSH [None]
  - INSOMNIA [None]
  - NAUSEA [None]
